FAERS Safety Report 4474145-4 (Version None)
Quarter: 2004Q4

REPORT INFORMATION
  Report Type: 
  Country: None (occurrence: None)
  Receive Date: 20041014
  Receipt Date: 20040901
  Transmission Date: 20050328
  Serious: Yes (Other)
  Sender: FDA-Public Use
  Company Number: 200416639US

PATIENT
  Age: 90 Year
  Sex: Female

DRUGS (3)
  1. CARAC [Suspect]
     Indication: CHEILITIS
     Dosage: DOSE: UNKNOWN
     Dates: start: 20040615, end: 20040715
  2. FUROSEMIDE [Concomitant]
     Dosage: DOSE: UNKNOWN
  3. NORVASC [Concomitant]
     Dosage: DOSE: UNKNOWN

REACTIONS (3)
  - ACCIDENTAL EXPOSURE [None]
  - PEMPHIGUS [None]
  - SCAB [None]
